FAERS Safety Report 4716273-1 (Version None)
Quarter: 2005Q2

REPORT INFORMATION
  Report Type: 
  Country: None (occurrence: None)
  Receive Date: 20050630
  Receipt Date: 20050126
  Transmission Date: 20051028
  Serious: Yes (Hospitalization)
  Sender: FDA-Public Use
  Company Number: US_990725110

PATIENT
  Age: 48 Year
  Sex: Female
  Weight: 47 kg

DRUGS (22)
  1. HUMALOG [Suspect]
     Indication: DIABETES MELLITUS
     Dosage: 23 U DAY
     Dates: start: 19990101
  2. INSULIN [Suspect]
  3. HUMULIN N [Suspect]
     Indication: DIABETES MELLITUS
     Dosage: 18 U DAY
     Dates: end: 19990101
  4. HUMULIN R [Suspect]
     Indication: DIABETES MELLITUS
     Dosage: 18 U DAY
     Dates: end: 19990101
  5. HUMULIN R [Suspect]
     Dates: end: 19990101
  6. LANTUS [Concomitant]
  7. DIGOXIN [Concomitant]
  8. CORGARD [Concomitant]
  9. ASPIRIN [Concomitant]
  10. SYNTHROID [Concomitant]
  11. VITAMIN D [Concomitant]
  12. COMBIPATCH [Concomitant]
  13. LIPITOR [Concomitant]
  14. XANAX (ALPRAZOLAM DUM) [Concomitant]
  15. ACTONEL [Concomitant]
  16. PROTONIX [Concomitant]
  17. LOSARTAN [Concomitant]
  18. KEFLEX [Concomitant]
  19. GLUCOSAMINE, CHONDROITIN, MSM [Concomitant]
  20. VITAMIN B6 [Concomitant]
  21. VITAMIN B-12 [Concomitant]
  22. CALCIUM GLUCONATE [Concomitant]

REACTIONS (13)
  - ASTHENIA [None]
  - BLOOD GLUCOSE INCREASED [None]
  - CARDIAC DISORDER [None]
  - DRUG INEFFECTIVE [None]
  - GASTROOESOPHAGEAL REFLUX DISEASE [None]
  - HYPERGLYCAEMIA [None]
  - HYPERHIDROSIS [None]
  - HYPOGLYCAEMIA [None]
  - NAIL INFECTION [None]
  - STOMACH DISCOMFORT [None]
  - TREMOR [None]
  - WEIGHT DECREASED [None]
  - WEIGHT INCREASED [None]
